FAERS Safety Report 21492245 (Version 1)
Quarter: 2022Q4

REPORT INFORMATION
  Report Type: Report from Study
  Country: CA (occurrence: CA)
  Receive Date: 20221021
  Receipt Date: 20221021
  Transmission Date: 20230112
  Serious: Yes (Other)
  Sender: FDA-Public Use
  Company Number: CA-TEVA-2022-CA-2817180

PATIENT
  Age: 70 Year
  Sex: Male

DRUGS (1)
  1. OCTREOTIDE [Suspect]
     Active Substance: OCTREOTIDE
     Indication: Hepatic neuroendocrine tumour
     Dosage: FORM STRENGTH AND UNIT DOSE: 40MG, 40MG EVERY 4 WEEKS
     Route: 030
     Dates: start: 20220121, end: 2022

REACTIONS (1)
  - Hepatic neuroendocrine tumour [Unknown]

NARRATIVE: CASE EVENT DATE: 20220101
